FAERS Safety Report 23349230 (Version 3)
Quarter: 2024Q4

REPORT INFORMATION
  Report Type: Spontaneous
  Country: BR (occurrence: BR)
  Receive Date: 20231229
  Receipt Date: 20241120
  Transmission Date: 20250115
  Serious: Yes (Hospitalization)
  Sender: ABBVIE
  Company Number: BR-ABBOTT-2023A-1375110

PATIENT
  Sex: Female
  Weight: 41 kg

DRUGS (1)
  1. DEPAKOTE [Suspect]
     Active Substance: DIVALPROEX SODIUM
     Indication: Seizure
     Route: 048

REACTIONS (5)
  - Tonsillitis [Unknown]
  - Seizure [Unknown]
  - Product storage error [Unknown]
  - Product quality issue [Unknown]
  - Nasopharyngitis [Unknown]
